FAERS Safety Report 4409478-0 (Version None)
Quarter: 2004Q3

REPORT INFORMATION
  Report Type: 
  Country: None (occurrence: None)
  Receive Date: 20040723
  Receipt Date: 20040712
  Transmission Date: 20050211
  Serious: Yes (Other)
  Sender: FDA-Public Use
  Company Number: 2004033529

PATIENT
  Age: 43 Year
  Sex: Male
  Weight: 82.1011 kg

DRUGS (3)
  1. ZOLOFT [Suspect]
     Indication: DEPRESSION
     Dosage: 25 MG, 1 IN 1 D, ORAL
     Route: 048
     Dates: start: 20040324, end: 20040326
  2. LORAZEPAM [Concomitant]
  3. METOPROLOL SUCCINATE [Concomitant]

REACTIONS (6)
  - AMNESIA [None]
  - DRUG HYPERSENSITIVITY [None]
  - FEELING ABNORMAL [None]
  - HALLUCINATION, VISUAL [None]
  - LEGAL PROBLEM [None]
  - PHYSICAL ASSAULT [None]
